FAERS Safety Report 16527072 (Version 2)
Quarter: 2020Q1

REPORT INFORMATION
  Report Type: Spontaneous
  Country: US (occurrence: US)
  Receive Date: 20190703
  Receipt Date: 20200106
  Transmission Date: 20200409
  Serious: Yes (Other)
  Sender: FDA-Public Use
  Company Number: US-PFIZER INC-2019276278

PATIENT
  Age: 70 Year
  Sex: Male

DRUGS (14)
  1. GEMCITABINE HYDROCHLORIDE. [Suspect]
     Active Substance: GEMCITABINE HYDROCHLORIDE
     Dosage: 600 MG/M2, CYCLIC(CYCLE 7 DAY 1 AND 8)
     Dates: start: 20180516
  2. IRINOTECAN HCL [Suspect]
     Active Substance: IRINOTECAN HYDROCHLORIDE
     Dosage: 40 MG/M2, CYCLIC(CYCLE 2 DAY 1)
     Dates: start: 20180103, end: 201801
  3. IRINOTECAN HCL [Suspect]
     Active Substance: IRINOTECAN HYDROCHLORIDE
     Dosage: 30 MG/M2, CYCLIC(CYCLE 4 DAY 1 AND 8)
     Dates: start: 20180221, end: 2018
  4. IRINOTECAN HCL [Suspect]
     Active Substance: IRINOTECAN HYDROCHLORIDE
     Dosage: 25 MG/M2, CYCLIC(CYCLE 6 DAY 1 AND 8)
     Dates: start: 20180418, end: 2018
  5. GEMCITABINE HYDROCHLORIDE. [Suspect]
     Active Substance: GEMCITABINE HYDROCHLORIDE
     Dosage: 1000 MG/M2, CYCLIC (CYCLE 1 DAY 1, MISSED DAY 8)
     Dates: start: 20171213
  6. GEMCITABINE HYDROCHLORIDE. [Suspect]
     Active Substance: GEMCITABINE HYDROCHLORIDE
     Dosage: 800 MG/M2, CYCLIC(CYCLE 5 DAY 1 AND 8)
     Dates: start: 20180321, end: 2018
  7. GEMCITABINE HYDROCHLORIDE. [Suspect]
     Active Substance: GEMCITABINE HYDROCHLORIDE
     Dosage: 600 MG/M2, CYCLIC(CYCLE 6 DAY 1 AND 8)
     Dates: start: 20180418, end: 2018
  8. GEMCITABINE HYDROCHLORIDE. [Suspect]
     Active Substance: GEMCITABINE HYDROCHLORIDE
     Dosage: 800 MG/M2, CYCLIC(CYCLE 4 DAY 1 AND 8)
     Dates: start: 20180221, end: 2018
  9. IRINOTECAN HCL [Suspect]
     Active Substance: IRINOTECAN HYDROCHLORIDE
     Dosage: 40 MG/M2, CYCLIC(CYCLE 1 DAY 1)
     Dates: start: 20171213
  10. GEMCITABINE HYDROCHLORIDE. [Suspect]
     Active Substance: GEMCITABINE HYDROCHLORIDE
     Dosage: 1000 MG/M2, CYCLIC(CYCLE 2 DAY 1, MISSED DAY 8)
     Dates: start: 20180103, end: 201801
  11. IRINOTECAN HCL [Suspect]
     Active Substance: IRINOTECAN HYDROCHLORIDE
     Dosage: 30 MG/M2, CYCLIC(CYCLE 3 DAY 1 AND 8)
     Dates: start: 20180124, end: 2018
  12. GEMCITABINE HYDROCHLORIDE. [Suspect]
     Active Substance: GEMCITABINE HYDROCHLORIDE
     Dosage: 1000 MG/M2, CYCLIC(CYCLE 3 DAY 1 AND 8)
     Dates: start: 20180124, end: 2018
  13. IRINOTECAN HCL [Suspect]
     Active Substance: IRINOTECAN HYDROCHLORIDE
     Dosage: 30 MG/M2, CYCLIC(CYCLE 5 DAY 1 AND 8)
     Dates: start: 20180321, end: 2018
  14. IRINOTECAN HCL [Suspect]
     Active Substance: IRINOTECAN HYDROCHLORIDE
     Dosage: 25 MG/M2, CYCLIC(CYCLE 7 DAY 1 AND 8)
     Dates: start: 20180516

REACTIONS (4)
  - Thrombocytopenia [Unknown]
  - Product use in unapproved indication [Unknown]
  - Neoplasm progression [Unknown]
  - Off label use [Unknown]

NARRATIVE: CASE EVENT DATE: 20171213
